FAERS Safety Report 9227211 (Version 1)
Quarter: 2013Q1

REPORT INFORMATION
  Report Type: Spontaneous
  Country: CA (occurrence: None)
  Receive Date: 20120914
  Receipt Date: 20120914
  Transmission Date: 20140127
  Serious: No
  Sender: FDA-Public Use
  Company Number: JPI-P-019485

PATIENT
  Age: 37 Year
  Sex: Female
  Weight: 84 kg

DRUGS (1)
  1. XYREM (500 MILLIGRAM/MILLILITERS, SOLUTION) (SODIUM OXYBATE) [Suspect]
     Indication: CATAPLEXY
     Dosage: 4.5GM (2.25GM 2 IN 1D) ORAL
     Route: 048
     Dates: start: 20120117, end: 20120121

REACTIONS (6)
  - Hallucination [None]
  - Nausea [None]
  - Headache [None]
  - Dizziness [None]
  - Disturbance in attention [None]
  - Depression [None]
